FAERS Safety Report 18792040 (Version 1)
Quarter: 2021Q1

REPORT INFORMATION
  Report Type: Spontaneous
  Country: US (occurrence: US)
  Receive Date: 20210126
  Receipt Date: 20210126
  Transmission Date: 20210419
  Serious: No
  Sender: FDA-Public Use
  Company Number: US-009507513-2101USA009592

PATIENT
  Age: 33 Year
  Sex: Male

DRUGS (3)
  1. PREGNYL [Suspect]
     Active Substance: CHORIOGONADOTROPIN ALFA
     Indication: BLOOD TESTOSTERONE
     Dosage: 1 MILLILITER, TWICE A WEEK, ROUTE: INJECTION
     Dates: start: 202004, end: 202009
  2. STERILE DILUENT (WATER) [Suspect]
     Active Substance: WATER
     Dosage: UNK
     Dates: start: 202004, end: 202009
  3. TESTOSTERONE CYPIONATE. [Concomitant]
     Active Substance: TESTOSTERONE CYPIONATE

REACTIONS (3)
  - Asthenia [Not Recovered/Not Resolved]
  - Product dose omission issue [Unknown]
  - Weight increased [Not Recovered/Not Resolved]

NARRATIVE: CASE EVENT DATE: 202009
